FAERS Safety Report 5017556-0 (Version None)
Quarter: 2006Q2

REPORT INFORMATION
  Report Type: 
  Country: None (occurrence: None)
  Receive Date: 20060601
  Receipt Date: 20060601
  Transmission Date: 20061013
  Serious: Yes (Hospitalization)
  Sender: FDA-Public Use
  Company Number: None

PATIENT
  Age: 52 Year
  Sex: Male
  Weight: 120 kg

DRUGS (1)
  1. LASIX [Suspect]
     Indication: OEDEMA
     Dosage: 60 MG/DAY

REACTIONS (2)
  - DIZZINESS [None]
  - NAUSEA [None]
